FAERS Safety Report 9219133 (Version 1)
Quarter: 2013Q2

REPORT INFORMATION
  Report Type: Spontaneous
  Country: US (occurrence: None)
  Receive Date: 20130405
  Receipt Date: 20130405
  Transmission Date: 20140414
  Serious: Yes (Life-Threatening)
  Sender: FDA-Public Use
  Company Number: None

PATIENT
  Age: 49 Year
  Sex: Male
  Weight: 114.8 kg

DRUGS (1)
  1. IOPROMIDE [Suspect]
     Indication: ANGIOGRAM
     Dates: start: 20120802, end: 20120802

REACTIONS (4)
  - Angioedema [None]
  - Rash [None]
  - Nausea [None]
  - Vomiting [None]
